FAERS Safety Report 8588027-X (Version None)
Quarter: 2012Q3

REPORT INFORMATION
  Report Type: 
  Country: None (occurrence: None)
  Receive Date: 20120813
  Receipt Date: 20120730
  Transmission Date: 20120928
  Serious: Yes (Death, Hospitalization)
  Sender: FDA-Public Use
  Company Number: DE-RANBAXY-2012US-58868

PATIENT
  Sex: Male

DRUGS (3)
  1. PANTOPRAZOLE [Suspect]
     Indication: PROPHYLAXIS
     Dosage: 40MG,QD
     Route: 048
     Dates: start: 20120625, end: 20120707
  2. FENTANYL [Concomitant]
     Indication: PRODUCT USED FOR UNKNOWN INDICATION
     Dosage: UNK
     Route: 062
     Dates: start: 20120614
  3. TRAMADOL HCL [Concomitant]
     Indication: PRODUCT USED FOR UNKNOWN INDICATION
     Dosage: 50 MG, TID
     Route: 065
     Dates: start: 20120123

REACTIONS (5)
  - PALPITATIONS [None]
  - HYPERHIDROSIS [None]
  - DIZZINESS [None]
  - MONOPLEGIA [None]
  - PALLOR [None]
